FAERS Safety Report 16716313 (Version 2)
Quarter: 2019Q3

REPORT INFORMATION
  Report Type: Spontaneous
  Country: US (occurrence: US)
  Receive Date: 20190819
  Receipt Date: 20190830
  Transmission Date: 20191005
  Serious: Yes (Other)
  Sender: FDA-Public Use
  Company Number: US-SAOL THERAPEUTICS-2019SAO00338

PATIENT
  Sex: Male

DRUGS (2)
  1. LIORESAL [Suspect]
     Active Substance: BACLOFEN
     Dosage: 19.97 ?G, \DAY
     Route: 037
     Dates: start: 20190628, end: 2019
  2. LIORESAL [Suspect]
     Active Substance: BACLOFEN
     Dosage: 12.02 ?G, \DAY (AS OF 12-AUG-2019)
     Route: 037
     Dates: start: 2019

REACTIONS (2)
  - Device dislocation [Recovered/Resolved]
  - Fall [Recovered/Resolved]

NARRATIVE: CASE EVENT DATE: 2019
